FAERS Safety Report 9113669 (Version 4)
Quarter: 2014Q1

REPORT INFORMATION
  Report Type: Spontaneous
  Country: US (occurrence: US)
  Receive Date: 20130201
  Receipt Date: 20140204
  Transmission Date: 20141002
  Serious: Yes (Other)
  Sender: FDA-Public Use
  Company Number: US-PFIZER INC-2013039576

PATIENT
  Age: 41 Year
  Sex: Female
  Weight: 136 kg

DRUGS (4)
  1. LYRICA [Suspect]
     Indication: BACK PAIN
     Dosage: UNK
  2. LYRICA [Suspect]
     Indication: NECK PAIN
  3. PROTONIX [Suspect]
     Indication: GASTROOESOPHAGEAL REFLUX DISEASE
     Dosage: 40 MG, DAILY
  4. HYOSCYAMINE [Concomitant]
     Indication: ABDOMINAL PAIN
     Dosage: UNK

REACTIONS (6)
  - Aphagia [Unknown]
  - Nasopharyngitis [Unknown]
  - Dysphonia [Unknown]
  - Gastrooesophageal reflux disease [Unknown]
  - Malaise [Unknown]
  - Drug dispensing error [Unknown]
